FAERS Safety Report 5178882-8 (Version None)
Quarter: 2006Q4

REPORT INFORMATION
  Report Type: 
  Country: None (occurrence: None)
  Receive Date: 20061208
  Receipt Date: 20061129
  Transmission Date: 20070319
  Serious: Yes (Hospitalization, Other)
  Sender: FDA-Public Use
  Company Number: 2006SP007475

PATIENT
  Age: 27 Year
  Sex: Female

DRUGS (2)
  1. PEG-INTRON [Suspect]
     Indication: HEPATITIS C
     Dosage: UNKNOWN
     Dates: start: 20061013
  2. RIBAVIRIN [Suspect]
     Indication: HEPATITIS C
     Dosage: UNKNOWN; PO
     Route: 048
     Dates: start: 20061013

REACTIONS (9)
  - BACK PAIN [None]
  - BLOOD POTASSIUM DECREASED [None]
  - DEHYDRATION [None]
  - DYSPNOEA [None]
  - GENERALISED OEDEMA [None]
  - KIDNEY INFECTION [None]
  - MALAISE [None]
  - PYREXIA [None]
  - VOMITING [None]
